FAERS Safety Report 17371675 (Version 7)
Quarter: 2020Q2

REPORT INFORMATION
  Report Type: Spontaneous
  Country: US (occurrence: US)
  Receive Date: 20200205
  Receipt Date: 20200618
  Transmission Date: 20200713
  Serious: Yes (Hospitalization, Other)
  Sender: FDA-Public Use
  Company Number: US-JNJFOC-20200152725

PATIENT
  Age: 67 Year
  Sex: Male
  Weight: 79.45 kg

DRUGS (2)
  1. TOPAMAX [Suspect]
     Active Substance: TOPIRAMATE
     Indication: HEADACHE
     Route: 065
     Dates: start: 20191217
  2. HUMIRA [Suspect]
     Active Substance: ADALIMUMAB
     Indication: PSORIASIS
     Dosage: BEFORE BEDTIME?112687,112687
     Route: 058
     Dates: end: 20191217

REACTIONS (6)
  - Scar [Unknown]
  - Tuberculosis [Recovered/Resolved]
  - Angle closure glaucoma [Recovering/Resolving]
  - Insomnia [Unknown]
  - Drug hypersensitivity [Unknown]
  - Cataract [Unknown]

NARRATIVE: CASE EVENT DATE: 20191217
